FAERS Safety Report 5599880-6 (Version None)
Quarter: 2008Q1

REPORT INFORMATION
  Report Type: 
  Country: None (occurrence: None)
  Receive Date: 20080117
  Receipt Date: 20080108
  Transmission Date: 20080703
  Serious: Yes (Life-Threatening, Other)
  Sender: FDA-Public Use
  Company Number: 08H-056-0313639-00

PATIENT
  Age: 60 Year
  Sex: Male

DRUGS (4)
  1. DOBUTAMINE IN DEXTROSE 5% [Suspect]
     Indication: STRESS ECHOCARDIOGRAM
     Dosage: 40 MCG/KG/MIN, INJECTION
     Route: 042
     Dates: start: 20041221
  2. ATROPINE [Concomitant]
  3. ESMOLOL (ESMOLOL) [Concomitant]
  4. METOPROLOL TARTRATE [Concomitant]

REACTIONS (11)
  - ACUTE MYOCARDIAL INFARCTION [None]
  - ATRIOVENTRICULAR BLOCK [None]
  - CARDIAC ARREST [None]
  - CARDIOGENIC SHOCK [None]
  - CORONARY ARTERY STENOSIS [None]
  - EJECTION FRACTION DECREASED [None]
  - HAEMATOMA [None]
  - POST PROCEDURAL COMPLICATION [None]
  - SINOATRIAL BLOCK [None]
  - TACHYCARDIA [None]
  - VENTRICULAR FIBRILLATION [None]
